FAERS Safety Report 17335289 (Version 2)
Quarter: 2020Q2

REPORT INFORMATION
  Report Type: Report from Study
  Country: US (occurrence: US)
  Receive Date: 20200128
  Receipt Date: 20200520
  Transmission Date: 20200713
  Serious: Yes (Death, Hospitalization, Other)
  Sender: FDA-Public Use
  Company Number: US-ROCHE-2456887

PATIENT
  Age: 76 Year
  Sex: Female
  Weight: 44.6 kg

DRUGS (3)
  1. ATEZOLIZUMAB. [Suspect]
     Active Substance: ATEZOLIZUMAB
     Indication: SMALL CELL LUNG CANCER
     Route: 042
     Dates: start: 20190925
  2. CARBOPLATIN. [Suspect]
     Active Substance: CARBOPLATIN
     Indication: SMALL CELL LUNG CANCER
     Route: 065
     Dates: start: 20190925
  3. ETOPOSIDE. [Suspect]
     Active Substance: ETOPOSIDE
     Indication: SMALL CELL LUNG CANCER
     Route: 065
     Dates: start: 20190927

REACTIONS (7)
  - Hypotension [Unknown]
  - Decreased appetite [Unknown]
  - Ileus [Unknown]
  - Angina pectoris [Recovered/Resolved]
  - Myocardial infarction [Not Recovered/Not Resolved]
  - Oesophagitis [Unknown]
  - COVID-19 [Fatal]

NARRATIVE: CASE EVENT DATE: 20191009
